FAERS Safety Report 20327288 (Version 1)
Quarter: 2022Q1

REPORT INFORMATION
  Report Type: Spontaneous
  Country: US (occurrence: None)
  Receive Date: 20220112
  Receipt Date: 20220112
  Transmission Date: 20220423
  Serious: Yes (Hospitalization)
  Sender: FDA-Public Use
  Company Number: None

PATIENT
  Age: 60 Year
  Sex: Male
  Weight: 72 kg

DRUGS (4)
  1. CISPLATIN [Suspect]
     Active Substance: CISPLATIN
     Dates: end: 20190720
  2. FILGRASTIM [Suspect]
     Active Substance: FILGRASTIM
     Dates: end: 20190725
  3. IFOSFAMIDE [Suspect]
     Active Substance: IFOSFAMIDE
     Dates: end: 20190720
  4. TAXOL [Suspect]
     Active Substance: PACLITAXEL
     Dates: end: 20190716

REACTIONS (4)
  - Febrile neutropenia [None]
  - Staphylococcal bacteraemia [None]
  - Pancytopenia [None]
  - Nausea [None]

NARRATIVE: CASE EVENT DATE: 20190725
